FAERS Safety Report 5923615-8 (Version None)
Quarter: 2008Q4

REPORT INFORMATION
  Report Type: 
  Country: None (occurrence: None)
  Receive Date: 20081015
  Receipt Date: 20080930
  Transmission Date: 20090506
  Serious: No
  Sender: FDA-Public Use
  Company Number: TPA2008A01540

PATIENT
  Age: 56 Year
  Sex: Female
  Weight: 58.0604 kg

DRUGS (2)
  1. DUETACT [Suspect]
     Indication: TYPE 2 DIABETES MELLITUS
     Dosage: 30/4 MG, 1 IN 1 D, PER ORAL, 1/2 TAB 30/4 MG, 1 IN 1 D, PER ORAL
     Route: 048
     Dates: start: 20080901, end: 20080901
  2. DUETACT [Suspect]
     Indication: TYPE 2 DIABETES MELLITUS
     Dosage: 30/4 MG, 1 IN 1 D, PER ORAL, 1/2 TAB 30/4 MG, 1 IN 1 D, PER ORAL
     Route: 048
     Dates: start: 20080904, end: 20080906

REACTIONS (5)
  - BURNING SENSATION [None]
  - FEELING ABNORMAL [None]
  - HYPERHIDROSIS [None]
  - PALPITATIONS [None]
  - PRESYNCOPE [None]
